FAERS Safety Report 4868171-0 (Version None)
Quarter: 2005Q4

REPORT INFORMATION
  Report Type: 
  Country: None (occurrence: None)
  Receive Date: 20051229
  Receipt Date: 20051221
  Transmission Date: 20060501
  Serious: Yes (Life-Threatening, Hospitalization, Other)
  Sender: FDA-Public Use
  Company Number: DE-JNJFOC-20051203338

PATIENT
  Sex: Female
  Weight: 73 kg

DRUGS (5)
  1. RISPERDAL [Suspect]
     Route: 048
  2. DIPIPERON [Concomitant]
     Route: 048
  3. DOMINAL [Concomitant]
     Indication: SLEEP DISORDER
  4. DOMINAL [Concomitant]
     Indication: AGITATION
  5. FAVISTAN [Concomitant]
     Indication: HYPERTHYROIDISM

REACTIONS (5)
  - CONVULSION [None]
  - HYPERAMMONAEMIA [None]
  - HYPONATRAEMIA [None]
  - INAPPROPRIATE ANTIDIURETIC HORMONE SECRETION [None]
  - PNEUMONIA ASPIRATION [None]
